FAERS Safety Report 16392182 (Version 1)
Quarter: 2019Q2

REPORT INFORMATION
  Report Type: Spontaneous
  Country: US (occurrence: US)
  Receive Date: 20190605
  Receipt Date: 20190605
  Transmission Date: 20190711
  Serious: No
  Sender: FDA-Public Use
  Company Number: US-HIKMA PHARMACEUTICALS USA INC.-US-H14001-19-02963

PATIENT
  Age: 60 Year
  Sex: Male
  Weight: 92.97 kg

DRUGS (4)
  1. ALLERTEC [Concomitant]
     Active Substance: CETIRIZINE HYDROCHLORIDE
     Indication: PRODUCT USED FOR UNKNOWN INDICATION
     Route: 065
     Dates: start: 2017
  2. FLUTICASONE PROPIONATE. [Suspect]
     Active Substance: FLUTICASONE PROPIONATE
     Dosage: 50 TO 100 MCG EACH NOSTRIL
     Route: 045
     Dates: start: 20190413, end: 20190423
  3. ASPIRIN. [Concomitant]
     Active Substance: ASPIRIN
     Indication: PRODUCT USED FOR UNKNOWN INDICATION
     Route: 065
  4. FLUTICASONE PROPIONATE. [Suspect]
     Active Substance: FLUTICASONE PROPIONATE
     Indication: PERENNIAL ALLERGY
     Dosage: 50 TO 100 MCG EACH NOSTRIL
     Route: 045
     Dates: start: 201804, end: 201811

REACTIONS (3)
  - Incorrect product administration duration [Recovered/Resolved]
  - Pruritus [Recovering/Resolving]
  - Incorrect dose administered [Recovered/Resolved]

NARRATIVE: CASE EVENT DATE: 20190420
